FAERS Safety Report 8223770-3 (Version None)
Quarter: 2012Q1

REPORT INFORMATION
  Report Type: 
  Country: None (occurrence: None)
  Receive Date: 20120321
  Receipt Date: 20120308
  Transmission Date: 20120608
  Serious: Yes (Hospitalization)
  Sender: FDA-Public Use
  Company Number: DE-RANBAXY-2011RR-51332

PATIENT
  Age: 51 Year
  Sex: Male
  Weight: 90 kg

DRUGS (2)
  1. ACETAMINOPHEN [Suspect]
     Indication: HEADACHE
     Dosage: 1500 MG/DAY
     Route: 048
     Dates: start: 20110619, end: 20110621
  2. LEVOFLOXACIN [Suspect]
     Indication: PRODUCT USED FOR UNKNOWN INDICATION
     Dosage: 500 MG/DAY
     Route: 048
     Dates: start: 20110621, end: 20110621

REACTIONS (4)
  - JAUNDICE [None]
  - RASH [None]
  - CHOLESTASIS [None]
  - TRANSAMINASES INCREASED [None]
